FAERS Safety Report 23931030 (Version 4)
Quarter: 2024Q4

REPORT INFORMATION
  Report Type: Spontaneous
  Country: US (occurrence: US)
  Receive Date: 20240603
  Receipt Date: 20241123
  Transmission Date: 20250114
  Serious: No
  Sender: GLAXOSMITHKLINE
  Company Number: US-GLAXOSMITHKLINE-US2024AMR065940

PATIENT
  Age: 53 Year
  Sex: Female

DRUGS (2)
  1. ZEJULA [Suspect]
     Active Substance: NIRAPARIB
     Indication: Ovarian cancer
     Dosage: 200 MG, QD
  2. ZEJULA [Suspect]
     Active Substance: NIRAPARIB
     Dosage: 100 MG, QD
     Dates: start: 202406

REACTIONS (7)
  - Nausea [Unknown]
  - Headache [Unknown]
  - Pain [Unknown]
  - Nasopharyngitis [Unknown]
  - Fatigue [Unknown]
  - Insomnia [Unknown]
  - Illness [Unknown]

NARRATIVE: CASE EVENT DATE: 20240525
